FAERS Safety Report 8535947-8 (Version None)
Quarter: 2012Q3

REPORT INFORMATION
  Report Type: 
  Country: None (occurrence: None)
  Receive Date: 20120725
  Receipt Date: 20120723
  Transmission Date: 20120928
  Serious: Yes (Other)
  Sender: FDA-Public Use
  Company Number: PHEH2010US00606

PATIENT
  Sex: Female

DRUGS (21)
  1. FASLODEX [Concomitant]
  2. KEFLEX [Concomitant]
  3. DURAGESIC-100 [Concomitant]
  4. RESTORIL [Concomitant]
  5. BACTRIM [Concomitant]
  6. ACIPHEX [Concomitant]
     Dosage: 20 MG, UNK
  7. VIOXX [Concomitant]
  8. VITAMIN B-12 [Concomitant]
  9. VITAMIN D [Concomitant]
  10. PREDNISONE [Concomitant]
  11. FOLIC ACID [Concomitant]
  12. DILAUDID [Concomitant]
  13. NEXIUM [Concomitant]
  14. AREDIA [Suspect]
     Dosage: 90 MG, QW4
     Route: 042
  15. MEGESTROL ACETATE [Concomitant]
     Dosage: 40 MG, UNK
  16. MEGACE [Concomitant]
  17. LEXAPRO [Concomitant]
     Dosage: 20 MG, UNK
  18. ZANTAC [Concomitant]
  19. ZOMETA [Suspect]
     Indication: METASTATIC NEOPLASM
     Dosage: 4 MG, QMO
     Route: 042
     Dates: end: 20081205
  20. CLARINEX [Concomitant]
  21. AROMASIN [Concomitant]

REACTIONS (95)
  - LOOSE TOOTH [None]
  - ANXIETY [None]
  - HYPERKERATOSIS [None]
  - KYPHOSIS [None]
  - TEMPORAL ARTERITIS [None]
  - HELICOBACTER GASTRITIS [None]
  - PNEUMOTHORAX [None]
  - PARAESTHESIA [None]
  - HEADACHE [None]
  - LEUKOCYTOSIS [None]
  - TRICUSPID VALVE INCOMPETENCE [None]
  - ARTHRALGIA [None]
  - NODAL OSTEOARTHRITIS [None]
  - INFECTION [None]
  - ANAEMIA [None]
  - ASTHENIA [None]
  - RIB FRACTURE [None]
  - DIZZINESS [None]
  - HYPOAESTHESIA [None]
  - TOOTHACHE [None]
  - OSTEOARTHRITIS [None]
  - BLINDNESS [None]
  - COLONIC POLYP [None]
  - GLAUCOMA [None]
  - VISION BLURRED [None]
  - MYALGIA [None]
  - ONYCHOMYCOSIS [None]
  - OROPHARYNGEAL PAIN [None]
  - BRONCHITIS [None]
  - CATARACT NUCLEAR [None]
  - PARONYCHIA [None]
  - FOOT FRACTURE [None]
  - OSTEONECROSIS OF JAW [None]
  - AMNESIA [None]
  - SEBORRHOEIC KERATOSIS [None]
  - PALPITATIONS [None]
  - PLEURAL EFFUSION [None]
  - RHINITIS [None]
  - DYSPNOEA [None]
  - CEREBRAL ATROPHY [None]
  - HAEMORRHOIDS [None]
  - BLOOD CHOLESTEROL INCREASED [None]
  - COLLAGEN-VASCULAR DISEASE [None]
  - INGROWING NAIL [None]
  - FATIGUE [None]
  - PAIN [None]
  - ACTINIC KERATOSIS [None]
  - BASAL CELL CARCINOMA [None]
  - SPINAL OSTEOARTHRITIS [None]
  - DEPRESSION [None]
  - GASTROOESOPHAGEAL REFLUX DISEASE [None]
  - DIPLOPIA [None]
  - INSOMNIA [None]
  - HEPATIC FIBROSIS [None]
  - FALL [None]
  - LIGAMENT SPRAIN [None]
  - INJURY [None]
  - ANHEDONIA [None]
  - PHOTODERMATOSIS [None]
  - LENTIGO [None]
  - INTERVERTEBRAL DISC DEGENERATION [None]
  - METASTASES TO BONE [None]
  - CHEST PAIN [None]
  - JOINT EFFUSION [None]
  - HYPERTENSION [None]
  - DYSURIA [None]
  - VITAMIN B12 DEFICIENCY [None]
  - WHEEZING [None]
  - RESPIRATORY TRACT CONGESTION [None]
  - INFLAMMATION [None]
  - GALLBLADDER DISORDER [None]
  - GAIT DISTURBANCE [None]
  - CATARACT CORTICAL [None]
  - STOMATITIS [None]
  - COMPRESSION FRACTURE [None]
  - SYNOVITIS [None]
  - PAINFUL RESPIRATION [None]
  - HYPOXIA [None]
  - HYPERTRANSAMINASAEMIA [None]
  - HEPATIC ENZYME INCREASED [None]
  - CEREBELLAR ATROPHY [None]
  - HEPATIC STEATOSIS [None]
  - NEUROPATHY PERIPHERAL [None]
  - SWELLING [None]
  - RHEUMATOID ARTHRITIS [None]
  - BACK PAIN [None]
  - SKIN PLAQUE [None]
  - HYPERLIPIDAEMIA [None]
  - INTERVERTEBRAL DISC PROTRUSION [None]
  - BRONCHIAL HYPERREACTIVITY [None]
  - ATELECTASIS [None]
  - BREAST PAIN [None]
  - DIVERTICULUM [None]
  - ONYCHOGRYPHOSIS [None]
  - TENDERNESS [None]
